FAERS Safety Report 9705952 (Version 1)
Quarter: 2013Q4

REPORT INFORMATION
  Report Type: Spontaneous
  Country: US (occurrence: US)
  Receive Date: 20131122
  Receipt Date: 20131122
  Transmission Date: 20140711
  Serious: Yes (Death)
  Sender: FDA-Public Use
  Company Number: US-GLAXOSMITHKLINE-A1047921A

PATIENT
  Sex: Male

DRUGS (2)
  1. LOVAZA [Suspect]
     Indication: CARDIOVASCULAR DISORDER
     Dosage: 1G UNKNOWN
     Route: 065
     Dates: start: 20101223
  2. LANOXIN [Suspect]
     Indication: CARDIOVASCULAR DISORDER
     Dosage: .125MG UNKNOWN
     Route: 065

REACTIONS (1)
  - Death [Fatal]
